FAERS Safety Report 12440488 (Version 1)
Quarter: 2016Q2

REPORT INFORMATION
  Report Type: Report from Study
  Country: US (occurrence: US)
  Receive Date: 20160606
  Receipt Date: 20160606
  Transmission Date: 20160815
  Serious: Yes (Hospitalization, Other)
  Sender: FDA-Public Use
  Company Number: US-ABBVIE-16K-163-1641256-00

PATIENT
  Age: 63 Year
  Sex: Female

DRUGS (1)
  1. HUMIRA [Suspect]
     Active Substance: ADALIMUMAB
     Indication: RHEUMATOID ARTHRITIS
     Route: 058
     Dates: start: 2009

REACTIONS (7)
  - Injection site bruising [Not Recovered/Not Resolved]
  - Injection site papule [Not Recovered/Not Resolved]
  - Sarcoma [Unknown]
  - Renal cyst [Not Recovered/Not Resolved]
  - Skin burning sensation [Not Recovered/Not Resolved]
  - Oesophageal polyp [Not Recovered/Not Resolved]
  - Upper extremity mass [Not Recovered/Not Resolved]

NARRATIVE: CASE EVENT DATE: 2015
